FAERS Safety Report 4840916-5 (Version None)
Quarter: 2005Q4

REPORT INFORMATION
  Report Type: 
  Country: None (occurrence: None)
  Receive Date: 20051130
  Receipt Date: 20050912
  Transmission Date: 20060501
  Serious: Yes (Hospitalization)
  Sender: FDA-Public Use
  Company Number: PHBS2005JP13386

PATIENT
  Age: 55 Year
  Sex: Female
  Weight: 55 kg

DRUGS (8)
  1. LAMISIL [Suspect]
     Indication: NAIL TINEA
     Dosage: 125 MG, QD
     Route: 048
     Dates: start: 20050806, end: 20050906
  2. CINAL [Concomitant]
     Indication: NAIL TINEA
     Dosage: 200 MG, TID
     Route: 048
     Dates: start: 20050806, end: 20050906
  3. JUVELA NICOTINATE [Concomitant]
     Indication: NAIL TINEA
     Dosage: 200 MG, TID
     Route: 048
     Dates: start: 20050806, end: 20050906
  4. FLOMOX [Concomitant]
     Indication: NASOPHARYNGITIS
     Dosage: 300 MG/DAY
     Route: 048
     Dates: start: 20050905, end: 20050906
  5. LOXONIN [Concomitant]
     Indication: NASOPHARYNGITIS
     Dosage: 180 MG/DAY
     Route: 048
     Dates: start: 20050905, end: 20050906
  6. SELBEX [Concomitant]
     Indication: NASOPHARYNGITIS
     Dosage: 150 MG/DAY
     Route: 048
     Dates: start: 20050905, end: 20050906
  7. ZEFNART [Concomitant]
     Indication: NAIL TINEA
     Route: 061
     Dates: start: 20050806
  8. ATOLANT [Concomitant]
     Indication: NAIL TINEA
     Route: 061
     Dates: start: 20050806

REACTIONS (15)
  - ABDOMINAL PAIN UPPER [None]
  - ALANINE AMINOTRANSFERASE INCREASED [None]
  - ASPARTATE AMINOTRANSFERASE INCREASED [None]
  - BILIRUBIN CONJUGATED INCREASED [None]
  - BLOOD ALKALINE PHOSPHATASE INCREASED [None]
  - BLOOD BILIRUBIN INCREASED [None]
  - BODY TEMPERATURE INCREASED [None]
  - CHROMATURIA [None]
  - GAMMA-GLUTAMYLTRANSFERASE INCREASED [None]
  - JAUNDICE [None]
  - LIVER DISORDER [None]
  - MALAISE [None]
  - NASOPHARYNGITIS [None]
  - OCULAR ICTERUS [None]
  - PYREXIA [None]
